FAERS Safety Report 8484537-4 (Version None)
Quarter: 2012Q3

REPORT INFORMATION
  Report Type: 
  Country: None (occurrence: None)
  Receive Date: 20120703
  Receipt Date: 20120620
  Transmission Date: 20120928
  Serious: No
  Sender: FDA-Public Use
  Company Number: US-ASTRAZENECA-2012SE41699

PATIENT
  Age: 47 Year
  Sex: Female

DRUGS (15)
  1. TRILIPIX [Suspect]
     Route: 048
     Dates: start: 20110518
  2. ALBUTEROL [Suspect]
     Dosage: 3 ML, EVERY 4 HOURS
     Route: 055
     Dates: start: 20110309
  3. NOVOLOG [Concomitant]
  4. MELOXICAM [Suspect]
     Route: 048
     Dates: start: 20110322
  5. BENICAR HCT [Suspect]
     Dosage: 40-12.5 MG, DAILY
     Route: 048
     Dates: start: 20120326
  6. PROVENTIL-HFA [Suspect]
     Dosage: 2 PUFF 4 TIMES A DAY
     Route: 055
     Dates: start: 20110518
  7. AZOPT [Concomitant]
  8. NEXIUM [Suspect]
     Route: 048
     Dates: start: 20120301
  9. SYSTANE ULTRA [Concomitant]
  10. INSULIN [Suspect]
     Dosage: AS DIRECTED
     Route: 065
     Dates: start: 20120316
  11. LUMIGAN [Concomitant]
  12. ATENOLOL [Suspect]
     Route: 048
     Dates: start: 20110818
  13. VIMOVO [Concomitant]
  14. LYRICA [Concomitant]
  15. LEVEMIR [Concomitant]

REACTIONS (2)
  - DIABETES MELLITUS [None]
  - DIABETIC NEUROPATHY [None]
